FAERS Safety Report 18597757 (Version 3)
Quarter: 2021Q1

REPORT INFORMATION
  Report Type: Report from Study
  Country: CA (occurrence: CA)
  Receive Date: 20201209
  Receipt Date: 20210119
  Transmission Date: 20210419
  Serious: Yes (Hospitalization, Other)
  Sender: FDA-Public Use
  Company Number: CA-OTSUKA-2020_027512

PATIENT
  Age: 0 Year
  Sex: Male
  Weight: 3.43 kg

DRUGS (13)
  1. NICOTINE. [Suspect]
     Active Substance: NICOTINE
     Indication: PRODUCT USED FOR UNKNOWN INDICATION
     Dosage: 10?13 PER DAY
     Route: 064
     Dates: start: 20191212
  2. BUPRENORPHINE HYDROCHLORIDE. [Suspect]
     Active Substance: BUPRENORPHINE HYDROCHLORIDE
     Dosage: INCREASED TO 26 MG PER DAY (ALONG WITH SUBUTEX 2 MG TABLET DOSE)
     Route: 064
     Dates: start: 20200423, end: 20200731
  3. RISPERIDONE. [Suspect]
     Active Substance: RISPERIDONE
     Indication: PSYCHOTIC DISORDER
     Dosage: 1?2 MG
     Route: 064
     Dates: start: 20200728, end: 20200914
  4. ABILIFY [Suspect]
     Active Substance: ARIPIPRAZOLE
     Dosage: 30 MILLIGRAM, QMO
     Route: 064
     Dates: start: 2019, end: 20200914
  5. BUPRENORPHINE HYDROCHLORIDE. [Suspect]
     Active Substance: BUPRENORPHINE HYDROCHLORIDE
     Dosage: TWO 8 MG DAILY(EXPOSED DURING 2ND TRIMESTER)
     Route: 064
     Dates: start: 20200312, end: 2020
  6. ABILIFY [Suspect]
     Active Substance: ARIPIPRAZOLE
     Indication: PSYCHOTIC DISORDER
     Dosage: UNK (MONTHLY INJECTABLE PRIOR)
     Route: 064
     Dates: start: 20191212
  7. ABILIFY [Suspect]
     Active Substance: ARIPIPRAZOLE
     Dosage: 10 ?30 MILLIGRAM (EXPOSED DURING 1ST TO 2ND TRIMESTER)
     Route: 064
     Dates: start: 2019
  8. BUPRENORPHINE HYDROCHLORIDE. [Suspect]
     Active Substance: BUPRENORPHINE HYDROCHLORIDE
     Indication: DRUG DEPENDENCE
     Dosage: 8 MILLIGRAM, TID
     Route: 064
     Dates: start: 20191212, end: 20200311
  9. BUPRENORPHINE HYDROCHLORIDE. [Suspect]
     Active Substance: BUPRENORPHINE HYDROCHLORIDE
     Dosage: 20 MG DAILY
     Route: 064
     Dates: end: 2020
  10. NICOTINE. [Suspect]
     Active Substance: NICOTINE
     Dosage: 5?10 PER DAY
     Route: 064
     Dates: end: 20200914
  11. BUPRENORPHINE HYDROCHLORIDE. [Suspect]
     Active Substance: BUPRENORPHINE HYDROCHLORIDE
     Indication: DRUG DEPENDENCE
     Dosage: FOUR 2 MG DAILY (EXPOSED DURING 2ND TRIMESTER)
     Route: 064
     Dates: start: 20200312, end: 2020
  12. BUPRENORPHINE HYDROCHLORIDE. [Suspect]
     Active Substance: BUPRENORPHINE HYDROCHLORIDE
     Dosage: 26 MG DAILY (ALONG WITH SUBUTEX 8 MG TABLET DOSE)
     Route: 064
     Dates: start: 20200423, end: 20200731
  13. TYLENOL [Suspect]
     Active Substance: ACETAMINOPHEN
     Indication: PRODUCT USED FOR UNKNOWN INDICATION
     Dosage: UNK
     Route: 064
     Dates: start: 20191212, end: 20200914

REACTIONS (4)
  - Ophthalmia neonatorum [Recovered/Resolved]
  - Drug withdrawal syndrome neonatal [Recovered/Resolved]
  - Hyperbilirubinaemia neonatal [Recovered/Resolved]
  - Foetal exposure during pregnancy [Unknown]

NARRATIVE: CASE EVENT DATE: 20191212
